FAERS Safety Report 25628887 (Version 1)
Quarter: 2025Q3

REPORT INFORMATION
  Report Type: Report from Study
  Country: US (occurrence: US)
  Receive Date: 20250731
  Receipt Date: 20250731
  Transmission Date: 20251020
  Serious: Yes (Other)
  Sender: MALLINCKRODT
  Company Number: US-MALLINCKRODT-MNK202502486

PATIENT
  Age: 45 Year
  Sex: Female
  Weight: 271 kg

DRUGS (5)
  1. CORTICOTROPIN [Suspect]
     Active Substance: CORTICOTROPIN
     Indication: Sarcoidosis
     Route: 058
     Dates: start: 20250418
  2. CORTICOTROPIN [Suspect]
     Active Substance: CORTICOTROPIN
  3. CORTICOTROPIN [Suspect]
     Active Substance: CORTICOTROPIN
  4. PREDNISONE [Suspect]
     Active Substance: PREDNISONE
     Indication: Product used for unknown indication
     Dosage: 20 TO 40 MG
     Route: 048
  5. KENALONE [Concomitant]

REACTIONS (4)
  - Cushing^s syndrome [Unknown]
  - Migraine [Unknown]
  - Injection site pain [Not Recovered/Not Resolved]
  - Inappropriate schedule of product administration [Unknown]

NARRATIVE: CASE EVENT DATE: 20250101
